FAERS Safety Report 9804930 (Version 1)
Quarter: 2014Q1

REPORT INFORMATION
  Report Type: Spontaneous
  Country: US (occurrence: US)
  Receive Date: 20140108
  Receipt Date: 20140108
  Transmission Date: 20141002
  Serious: Yes (Hospitalization, Other)
  Sender: FDA-Public Use
  Company Number: US-AMGEN-USASP2013091801

PATIENT
  Age: 40 Year
  Sex: Female
  Weight: 63.49 kg

DRUGS (11)
  1. PROCRIT [Suspect]
     Indication: ANAEMIA
     Dosage: UNK
     Route: 065
     Dates: start: 1995, end: 1999
  2. ELMIRON [Suspect]
     Indication: CYSTITIS INTERSTITIAL
     Dosage: 200 MG, TID
     Route: 048
  3. BENICAR [Concomitant]
     Indication: HYPERTENSION
     Dosage: 20 MG, QD
     Route: 048
  4. SYNTHROID [Concomitant]
     Indication: HYPERTHYROIDISM
     Dosage: 0.15 MG, QD
     Route: 048
  5. LIPOFEN [Concomitant]
     Indication: BLOOD CHOLESTEROL INCREASED
     Dosage: 150 MG, QD
     Route: 048
     Dates: start: 2012, end: 201312
  6. NEURONTIN [Concomitant]
     Indication: PAIN
     Dosage: 1200 MG/300 MG, 4 TIMES A DAY
     Route: 048
     Dates: start: 200704
  7. MYRBETRIQ [Concomitant]
     Dosage: 25 MG, QD
     Route: 048
     Dates: start: 201308
  8. ATARAX                             /00058401/ [Concomitant]
     Dosage: 25 MG/UPTO 4 TIMES A DAY
     Route: 048
  9. ACIPHEX [Concomitant]
     Indication: GASTROOESOPHAGEAL REFLUX DISEASE
     Dosage: 20 MG, QD
     Route: 048
  10. CYMBALTA [Concomitant]
     Indication: FIBROMYALGIA
     Dosage: 30 MG/ 2 TABLET IN MORNING AND 1 TABLET IN EVENING
     Route: 048
     Dates: start: 2011
  11. SAVELLA [Concomitant]
     Indication: FIBROMYALGIA
     Dosage: 50 MG, BID
     Route: 048
     Dates: start: 2011

REACTIONS (10)
  - Abdominal mass [Not Recovered/Not Resolved]
  - Presyncope [Recovered/Resolved]
  - Activities of daily living impaired [Not Recovered/Not Resolved]
  - Blood pressure abnormal [Recovered/Resolved]
  - Headache [Recovered/Resolved]
  - Haemoglobin abnormal [Not Recovered/Not Resolved]
  - Haematocrit abnormal [Not Recovered/Not Resolved]
  - Fatigue [Not Recovered/Not Resolved]
  - Malaise [Recovered/Resolved]
  - Cystitis interstitial [Unknown]
